FAERS Safety Report 23991880 (Version 2)
Quarter: 2024Q3

REPORT INFORMATION
  Report Type: Spontaneous
  Country: CN (occurrence: CN)
  Receive Date: 20240619
  Receipt Date: 20240709
  Transmission Date: 20241016
  Serious: Yes (Disabling, Other)
  Sender: ASTELLAS
  Company Number: CN-ASTELLAS-2024US017464

PATIENT
  Age: 74 Year
  Sex: Male

DRUGS (1)
  1. XTANDI [Suspect]
     Active Substance: ENZALUTAMIDE
     Indication: Hormone-refractory prostate cancer
     Route: 048
     Dates: start: 20231228, end: 20240607

REACTIONS (3)
  - Depressed level of consciousness [Unknown]
  - Seizure [Not Recovered/Not Resolved]
  - Blood pressure decreased [Unknown]

NARRATIVE: CASE EVENT DATE: 20240607
